FAERS Safety Report 13235544 (Version 2)
Quarter: 2017Q3

REPORT INFORMATION
  Report Type: Spontaneous
  Country: DE (occurrence: DE)
  Receive Date: 20170215
  Receipt Date: 20170721
  Transmission Date: 20171127
  Serious: Yes (Other)
  Sender: FDA-Public Use
  Company Number: DE-BAYER-2017-027891

PATIENT
  Age: 50 Year
  Sex: Female

DRUGS (3)
  1. MIRENA [Suspect]
     Active Substance: LEVONORGESTREL
     Indication: CONTRACEPTION
     Dosage: 20 MCG/24HR, CONT
     Route: 015
     Dates: start: 201006, end: 201506
  2. MIRENA [Suspect]
     Active Substance: LEVONORGESTREL
     Indication: CONTRACEPTION
     Dosage: 20 MCG/24HR, CONT
     Route: 015
     Dates: start: 201506, end: 20160707
  3. JODETTEN [Concomitant]
     Dosage: UNK
     Dates: end: 201609

REACTIONS (54)
  - Tunnel vision [Recovering/Resolving]
  - Impaired driving ability [Recovering/Resolving]
  - Vertigo [Recovering/Resolving]
  - Discomfort [Recovering/Resolving]
  - Hypoaesthesia [Recovering/Resolving]
  - Muscle twitching [Recovering/Resolving]
  - Speech disorder [Recovering/Resolving]
  - Palpitations [Recovering/Resolving]
  - Adverse event [Recovering/Resolving]
  - Headache [None]
  - Weight decreased [Recovering/Resolving]
  - Limb discomfort [Recovering/Resolving]
  - Mobility decreased [Recovering/Resolving]
  - Fatigue [Recovering/Resolving]
  - Dysstasia [Recovering/Resolving]
  - Dystonia [None]
  - Blepharitis [None]
  - Chronic sinusitis [None]
  - Hemianaesthesia [Recovering/Resolving]
  - Syncope [Recovering/Resolving]
  - Dyspnoea [Recovering/Resolving]
  - Pain in extremity [Recovering/Resolving]
  - Paranasal sinus discomfort [Recovering/Resolving]
  - Photosensitivity reaction [None]
  - Aphasia [None]
  - Chemical poisoning [None]
  - Chest discomfort [Recovering/Resolving]
  - Visual impairment [Recovering/Resolving]
  - Abdominal discomfort [Recovering/Resolving]
  - Decreased appetite [Recovering/Resolving]
  - Night sweats [Recovering/Resolving]
  - Asthenia [Recovering/Resolving]
  - Eye disorder [Recovering/Resolving]
  - Visual impairment [None]
  - Visual impairment [None]
  - Musculoskeletal disorder [None]
  - Head discomfort [None]
  - Eructation [Recovering/Resolving]
  - Paraesthesia [Recovering/Resolving]
  - Chills [None]
  - Pain of skin [Recovering/Resolving]
  - Muscular weakness [Recovering/Resolving]
  - Pain of skin [None]
  - Dysgraphia [None]
  - Clumsiness [None]
  - Cardiovascular disorder [Recovering/Resolving]
  - Fine motor skill dysfunction [Recovering/Resolving]
  - Gait disturbance [Recovering/Resolving]
  - Migraine with aura [Recovered/Resolved]
  - Feeling abnormal [None]
  - Muscular weakness [None]
  - Coordination abnormal [Recovering/Resolving]
  - Nausea [Recovering/Resolving]
  - Myalgia [Recovering/Resolving]

NARRATIVE: CASE EVENT DATE: 2015
